FAERS Safety Report 14019523 (Version 3)
Quarter: 2017Q4

REPORT INFORMATION
  Report Type: Spontaneous
  Country: FR (occurrence: FR)
  Receive Date: 20170928
  Receipt Date: 20171222
  Transmission Date: 20180321
  Serious: Yes (Death, Life-Threatening, Hospitalization, Other)
  Sender: FDA-Public Use
  Company Number: FR-AUROBINDO-AUR-APL-2017-41007

PATIENT
  Age: 34 Year
  Sex: Male

DRUGS (13)
  1. METOPROLOL. [Suspect]
     Active Substance: METOPROLOL
     Indication: PRODUCT USED FOR UNKNOWN INDICATION
     Dosage: 100 MG, DAILY
     Route: 048
  2. CLOBAZAM [Concomitant]
     Active Substance: CLOBAZAM
  3. LAMOTRIGINE. [Suspect]
     Active Substance: LAMOTRIGINE
     Indication: PRODUCT USED FOR UNKNOWN INDICATION
     Dosage: 200 MG, DAILY
     Route: 048
  4. LAMOTRIGINE. [Suspect]
     Active Substance: LAMOTRIGINE
     Route: 048
  5. PERAMPANEL [Concomitant]
     Active Substance: PERAMPANEL
     Indication: PRODUCT USED FOR UNKNOWN INDICATION
     Dosage: 8 MG, DAILY
     Route: 065
  6. LACOSAMIDE. [Suspect]
     Active Substance: LACOSAMIDE
     Dosage: 400 MG, UNK
     Route: 048
  7. PERAMPANEL [Concomitant]
     Active Substance: PERAMPANEL
  8. CLOBAZAM [Concomitant]
     Active Substance: CLOBAZAM
     Indication: PRODUCT USED FOR UNKNOWN INDICATION
     Dosage: 5 MG, UNK
     Route: 065
  9. LACOSAMIDE. [Suspect]
     Active Substance: LACOSAMIDE
     Indication: PRODUCT USED FOR UNKNOWN INDICATION
     Dosage: 400 MG, DAILY
     Route: 048
  10. PERAMPANEL [Concomitant]
     Active Substance: PERAMPANEL
  11. CLOBAZAM [Concomitant]
     Active Substance: CLOBAZAM
  12. METOPROLOL. [Suspect]
     Active Substance: METOPROLOL
     Dosage: 3.5 G, UNK
     Route: 048
  13. LACOSAMIDE. [Suspect]
     Active Substance: LACOSAMIDE
     Dosage: 8.4 G, UNK
     Route: 048

REACTIONS (10)
  - Toxicity to various agents [Fatal]
  - Intentional overdose [Fatal]
  - Metabolic acidosis [Unknown]
  - Shock [Fatal]
  - Atrioventricular block [Unknown]
  - Mydriasis [Unknown]
  - Multiple organ dysfunction syndrome [Fatal]
  - Epilepsy [Unknown]
  - Cardiac arrest [Unknown]
  - Renal failure [Unknown]
